FAERS Safety Report 10108974 (Version 2)
Quarter: 2014Q2

REPORT INFORMATION
  Report Type: Spontaneous
  Country: JP (occurrence: JP)
  Receive Date: 20140425
  Receipt Date: 20140425
  Transmission Date: 20141212
  Serious: Yes (Other)
  Sender: FDA-Public Use
  Company Number: JP-JNJFOC-20140318714

PATIENT
  Age: 60 Year
  Sex: Male

DRUGS (8)
  1. SOVRIAD [Suspect]
     Indication: CHRONIC HEPATITIS C
     Route: 048
     Dates: start: 20140319
  2. PEGASYS [Suspect]
     Indication: CHRONIC HEPATITIS C
     Route: 058
     Dates: start: 20140416
  3. PEGASYS [Suspect]
     Indication: CHRONIC HEPATITIS C
     Route: 058
     Dates: start: 20140319, end: 20140415
  4. COPEGUS [Suspect]
     Indication: CHRONIC HEPATITIS C
     Route: 048
     Dates: start: 20140416
  5. COPEGUS [Suspect]
     Indication: CHRONIC HEPATITIS C
     Route: 048
     Dates: start: 20140314, end: 20140415
  6. COPEGUS [Suspect]
     Indication: CHRONIC HEPATITIS C
     Route: 048
     Dates: start: 20140319, end: 20140413
  7. CLARITIN [Concomitant]
     Indication: PROPHYLAXIS
     Route: 048
     Dates: start: 20140319
  8. ALOSITOL [Concomitant]
     Indication: HYPERURICAEMIA
     Route: 048
     Dates: start: 20140319, end: 20140415

REACTIONS (4)
  - Pancytopenia [Unknown]
  - Blood bilirubin increased [Recovering/Resolving]
  - Haemoglobin decreased [Unknown]
  - Hyperuricaemia [Recovering/Resolving]
